FAERS Safety Report 8156377-7 (Version None)
Quarter: 2012Q1

REPORT INFORMATION
  Report Type: 
  Country: None (occurrence: None)
  Receive Date: 20120222
  Receipt Date: 20120216
  Transmission Date: 20120608
  Serious: Yes (Other)
  Sender: FDA-Public Use
  Company Number: PT-PFIZER INC-2012041825

PATIENT
  Age: 60 Year
  Sex: Female
  Weight: 86 kg

DRUGS (4)
  1. UNISEDIL [Concomitant]
  2. FLUDEX - SLOW RELEASE [Concomitant]
  3. PARACETAMOL [Concomitant]
  4. AROMASIN [Suspect]
     Indication: BREAST CANCER
     Dosage: 25 MG, 1X/DAY
     Route: 048
     Dates: start: 20110615

REACTIONS (2)
  - MYALGIA [None]
  - GAIT DISTURBANCE [None]
